FAERS Safety Report 24708662 (Version 1)
Quarter: 2024Q4

REPORT INFORMATION
  Report Type: Report from Study
  Country: GB (occurrence: GB)
  Receive Date: 20241207
  Receipt Date: 20241207
  Transmission Date: 20250115
  Serious: Yes (Hospitalization, Other)
  Sender: ABBVIE
  Company Number: GB-ABBVIE-6032509

PATIENT
  Age: 88 Year
  Sex: Female

DRUGS (1)
  1. SKYRIZI [Suspect]
     Active Substance: RISANKIZUMAB-RZAA
     Indication: Crohn^s disease
     Dosage: 1.00 EA
     Route: 058

REACTIONS (5)
  - Diarrhoea [Unknown]
  - Cardiac arrest [Unknown]
  - Renal disorder [Unknown]
  - Cerebrovascular accident [Unknown]
  - Intra-ocular injection [Unknown]

NARRATIVE: CASE EVENT DATE: 20240101
